FAERS Safety Report 8330958-X (Version None)
Quarter: 2012Q2

REPORT INFORMATION
  Report Type: 
  Country: None (occurrence: None)
  Receive Date: 20120502
  Receipt Date: 20120404
  Transmission Date: 20120825
  Serious: No
  Sender: FDA-Public Use
  Company Number: US-AMGEN-USASP2012020012

PATIENT
  Age: 58 Year
  Sex: Female
  Weight: 90.703 kg

DRUGS (2)
  1. ENBREL [Suspect]
     Indication: RHEUMATOID ARTHRITIS
     Dosage: 50 MG, QWK
     Route: 058
     Dates: start: 20120314
  2. METHOTREXATE [Concomitant]
     Indication: RHEUMATOID ARTHRITIS
     Dosage: 17.5 MG, QWK
     Route: 048
     Dates: start: 20110906

REACTIONS (4)
  - INJECTION SITE ERYTHEMA [None]
  - INJECTION SITE MASS [None]
  - INJECTION SITE REACTION [None]
  - INJECTION SITE HAEMATOMA [None]
